FAERS Safety Report 10085893 (Version 1)
Quarter: 2014Q2

REPORT INFORMATION
  Report Type: Spontaneous
  Country: US (occurrence: US)
  Receive Date: 20140418
  Receipt Date: 20140418
  Transmission Date: 20141212
  Serious: Yes (Death, Hospitalization)
  Sender: FDA-Public Use
  Company Number: US-AMGEN INC.-USASP2014028044

PATIENT
  Age: 65 Year
  Sex: Female

DRUGS (1)
  1. PROCRIT [Suspect]
     Indication: ANAEMIA
     Dosage: 10000 ML, 1ML-4 VIAL
     Route: 065

REACTIONS (1)
  - Cerebrovascular accident [Fatal]
